FAERS Safety Report 11284288 (Version 1)
Quarter: 2015Q3

REPORT INFORMATION
  Report Type: Spontaneous
  Country: US (occurrence: US)
  Receive Date: 20150720
  Receipt Date: 20150720
  Transmission Date: 20151125
  Serious: No
  Sender: FDA-Public Use
  Company Number: US-TAKEDA-2014TUS013874

PATIENT
  Sex: Female
  Weight: 125 kg

DRUGS (8)
  1. SINGULAIR [Concomitant]
     Active Substance: MONTELUKAST SODIUM
     Indication: ASTHMA
     Dosage: DURATION: 10 YEARS
     Route: 048
     Dates: start: 2004
  2. ENTYVIO [Suspect]
     Active Substance: VEDOLIZUMAB
     Indication: CROHN^S DISEASE
     Dosage: 300 MG, FIRST DOSE, 4.8 ML STERILE H20 IN 250 ML NS/IV 30 MINS
     Route: 042
     Dates: start: 201406, end: 201406
  3. ENTYVIO [Suspect]
     Active Substance: VEDOLIZUMAB
     Dosage: 300 MG, FIFTH DOSE, 4.8 ML STERILE H20 IN 250 ML NS/IV 30 MINS
     Route: 042
     Dates: start: 201409, end: 201409
  4. ENTYVIO [Suspect]
     Active Substance: VEDOLIZUMAB
     Dosage: 300 MG, SECOND DOSE, 4.8 ML STERILE H20 IN 250 ML NS/IV 30 MINS
     Route: 042
     Dates: start: 2014, end: 2014
  5. ENTYVIO [Suspect]
     Active Substance: VEDOLIZUMAB
     Dosage: 300 MG, THIRD DOSE, 4.8 ML STERILE H20 IN 250 ML NS/IV 30 MINS
     Route: 042
     Dates: start: 2014, end: 2014
  6. ENTYVIO [Suspect]
     Active Substance: VEDOLIZUMAB
     Dosage: 300 MG, FOURTH DOSE, 4.8 ML STERILE H20 IN 250 ML NS/IV 30 MINS
     Dates: start: 2014, end: 2014
  7. METHOTREXATE [Concomitant]
     Active Substance: METHOTREXATE
     Indication: CROHN^S DISEASE
     Dosage: DURATION: ONE AND HALF YEARS
     Route: 048
     Dates: start: 2013
  8. ZYRTEC [Concomitant]
     Active Substance: CETIRIZINE HYDROCHLORIDE
     Indication: HYPERSENSITIVITY
     Dosage: DURATION: 8 YEARS
     Route: 048
     Dates: start: 2006

REACTIONS (1)
  - Drug ineffective [Unknown]
